FAERS Safety Report 10037451 (Version 1)
Quarter: 2014Q1

REPORT INFORMATION
  Report Type: Spontaneous
  Country: US (occurrence: None)
  Receive Date: 20140324
  Receipt Date: 20140324
  Transmission Date: 20141002
  Serious: Yes (Hospitalization)
  Sender: FDA-Public Use
  Company Number: 2014AP001979

PATIENT
  Age: 66 Year
  Sex: Male
  Weight: 99 kg

DRUGS (10)
  1. RAMIPRIL [Suspect]
     Indication: PROTEINURIA
     Route: 048
     Dates: start: 20100519, end: 20101204
  2. SIROLIMUS [Suspect]
     Indication: PROPHYLAXIS AGAINST TRANSPLANT REJECTION
     Route: 048
     Dates: start: 20100611, end: 2010
  3. CELLCEPT [Suspect]
     Indication: IMMUNOSUPPRESSION
     Route: 048
     Dates: start: 20100107, end: 20101214
  4. PREDNISONE [Suspect]
     Indication: IMMUNOSUPPRESSION
     Route: 048
     Dates: start: 20100112
  5. FLUDROCORTISONE ACETATE [Suspect]
     Indication: IMMUNOSUPPRESSANT DRUG THERAPY
     Route: 048
     Dates: start: 20100309
  6. FUROSEMIDE [Concomitant]
  7. DAPSONE [Concomitant]
  8. NOVOLOG [Concomitant]
  9. GLUCOTROL [Concomitant]
  10. LANTUS [Concomitant]

REACTIONS (4)
  - Herpes zoster disseminated [None]
  - Confusional state [None]
  - Encephalitis [None]
  - Leukocytosis [None]
